FAERS Safety Report 13075678 (Version 1)
Quarter: 2016Q4

REPORT INFORMATION
  Report Type: Spontaneous
  Country: ES (occurrence: ES)
  Receive Date: 20161230
  Receipt Date: 20161230
  Transmission Date: 20170207
  Serious: Yes (Other)
  Sender: FDA-Public Use
  Company Number: ES-JNJFOC-20161224358

PATIENT

DRUGS (2)
  1. TRASTUZUMAB [Suspect]
     Active Substance: TRASTUZUMAB
     Indication: BREAST CANCER
     Dosage: 1 CYCLE EVERY 21 DAYS FOR 6 CYCLES WERE PROSPECTIVELY ENROLLED BETWEEN JUNE 2013 AND JULY 2015.
     Route: 065
  2. DOXORUBICIN HYDROCHLORIDE. [Suspect]
     Active Substance: DOXORUBICIN HYDROCHLORIDE
     Indication: BREAST CANCER
     Dosage: 1 CYCLE EVERY 21 DAYS FOR 6 CYCLES WERE PROSPECTIVELY ENROLLED BETWEEN JUNE 2013 AND JULY 2015.
     Route: 065

REACTIONS (1)
  - Cardiotoxicity [Unknown]
